FAERS Safety Report 17570165 (Version 1)
Quarter: 2020Q1

REPORT INFORMATION
  Report Type: Spontaneous
  Country: US (occurrence: US)
  Receive Date: 20200323
  Receipt Date: 20200323
  Transmission Date: 20200409
  Serious: No
  Sender: FDA-Public Use
  Company Number: US-AMGEN-USASP2020046777

PATIENT
  Sex: Male

DRUGS (1)
  1. REPATHA [Suspect]
     Active Substance: EVOLOCUMAB
     Indication: PRODUCT USED FOR UNKNOWN INDICATION
     Dosage: UNK
     Route: 065

REACTIONS (11)
  - Musculoskeletal chest pain [Unknown]
  - Headache [Unknown]
  - Myalgia [Unknown]
  - Hypoaesthesia oral [Unknown]
  - Neck pain [Unknown]
  - Gait disturbance [Unknown]
  - Back pain [Unknown]
  - Pharyngeal hypoaesthesia [Unknown]
  - Pain in extremity [Unknown]
  - Hypoaesthesia [Unknown]
  - Arthralgia [Unknown]
